FAERS Safety Report 6889462-8 (Version None)
Quarter: 2010Q3

REPORT INFORMATION
  Report Type: 
  Country: None (occurrence: None)
  Receive Date: 20100730
  Receipt Date: 20080301
  Transmission Date: 20110219
  Serious: No
  Sender: FDA-Public Use
  Company Number: US-PFIZER INC-2008020065

PATIENT
  Sex: Female

DRUGS (3)
  1. LIPITOR [Suspect]
     Indication: PROPHYLAXIS
     Route: 048
     Dates: start: 20080118, end: 20080127
  2. NITROGLYCERIN [Concomitant]
     Indication: ARTERIAL SPASM
  3. DIOVANE [Concomitant]
     Indication: ARTERIAL SPASM

REACTIONS (1)
  - MYALGIA [None]
